FAERS Safety Report 13992911 (Version 3)
Quarter: 2018Q2

REPORT INFORMATION
  Report Type: Spontaneous
  Country: FR (occurrence: FR)
  Receive Date: 20170920
  Receipt Date: 20180622
  Transmission Date: 20180711
  Serious: Yes (Hospitalization, Other)
  Sender: FDA-Public Use
  Company Number: FR-ASTRAZENECA-2017SE94800

PATIENT
  Age: 939 Month
  Sex: Female
  Weight: 68 kg

DRUGS (15)
  1. DIFFU K [Suspect]
     Active Substance: POTASSIUM CHLORIDE
     Indication: HYPOKALAEMIA
     Route: 048
     Dates: start: 201708
  2. DILATRANE [Suspect]
     Active Substance: THEOPHYLLINE
     Indication: CHRONIC OBSTRUCTIVE PULMONARY DISEASE
     Route: 048
     Dates: start: 2015
  3. VENTOLINE [Suspect]
     Active Substance: ALBUTEROL
     Indication: ASTHMA
     Dosage: ONE DOSAGE FORM IN CASE OF BREATH SHORTNESS AS REQUIRED
     Route: 055
     Dates: start: 2015
  4. BOTULINUM TOXIN TYPE A [Suspect]
     Active Substance: BOTULINUM TOXIN TYPE A
     Indication: HYPERTENSION
     Route: 065
     Dates: start: 201708
  5. TRIFLUCAN [Suspect]
     Active Substance: FLUCONAZOLE
     Indication: FUNGAL INFECTION
     Dosage: 50 MOUTHWASHES
     Route: 002
     Dates: start: 201708
  6. SINGULAIR [Suspect]
     Active Substance: MONTELUKAST SODIUM
     Indication: ASTHMA
     Dosage: 10.0MG UNKNOWN
     Route: 048
     Dates: start: 2015
  7. CORTANCYL [Suspect]
     Active Substance: PREDNISONE
     Indication: CHRONIC OBSTRUCTIVE PULMONARY DISEASE
     Route: 048
     Dates: start: 201708
  8. XELODA [Suspect]
     Active Substance: CAPECITABINE
     Indication: RECTAL CANCER
     Route: 048
     Dates: start: 2006, end: 2006
  9. SINGULAIR [Suspect]
     Active Substance: MONTELUKAST SODIUM
     Indication: ASTHMA
     Dosage: 100.0MG UNKNOWN
     Route: 048
     Dates: start: 2015
  10. BURINEX [Suspect]
     Active Substance: BUMETANIDE
     Indication: HYPERTENSION
     Route: 048
     Dates: start: 201708
  11. TRIFLUCAN [Suspect]
     Active Substance: FLUCONAZOLE
     Indication: FUNGAL INFECTION
     Dosage: 50 MOUTHWASHES
     Route: 002
     Dates: start: 201708
  12. BOTOX [Suspect]
     Active Substance: ONABOTULINUMTOXINA
     Indication: ANAL INCONTINENCE
     Dosage: 500 UNITS/INJECTION 9 TIMES
     Route: 030
     Dates: start: 201201
  13. PULMICORT TURBUHALER [Suspect]
     Active Substance: BUDESONIDE
     Indication: CHRONIC OBSTRUCTIVE PULMONARY DISEASE
     Dosage: 200 UG TWICE A DAY IN MORNING AND EVENING
     Route: 055
     Dates: start: 2015
  14. BOTULINUM TOXIN TYPE A [Suspect]
     Active Substance: BOTULINUM TOXIN TYPE A
     Indication: HYPERTENSION
     Dosage: 500 UNITS, SINGLE/ 9 INJECTIONS DE 500 UNIT??S
     Route: 030
     Dates: start: 201201, end: 201201
  15. OXALIPLATIN. [Suspect]
     Active Substance: OXALIPLATIN
     Indication: RECTAL CANCER
     Route: 042
     Dates: start: 2006, end: 2006

REACTIONS (5)
  - Congestive cardiomyopathy [Not Recovered/Not Resolved]
  - Off label use [Unknown]
  - Overdose [Unknown]
  - Arteriosclerosis coronary artery [Not Recovered/Not Resolved]
  - Left ventricular failure [Not Recovered/Not Resolved]

NARRATIVE: CASE EVENT DATE: 201708
